FAERS Safety Report 5491849-5 (Version None)
Quarter: 2007Q4

REPORT INFORMATION
  Report Type: 
  Country: None (occurrence: None)
  Receive Date: 20071018
  Receipt Date: 20071005
  Transmission Date: 20080405
  Serious: Yes (Hospitalization)
  Sender: FDA-Public Use
  Company Number: 2007S1009936

PATIENT
  Age: 61 Year
  Sex: Male

DRUGS (4)
  1. NADOLOL [Suspect]
     Dosage: 40 MG; DAILY
  2. DILTIAZEM HYDROCHLORIDE [Suspect]
     Dosage: 300 MG; DAILY
  3. HYDROCHLOROTHIAZIDE [Suspect]
     Dosage: 32.5 MG; DAILY
  4. IRBESARTAN [Suspect]
     Dosage: 300 MG; DAILY

REACTIONS (9)
  - BLOOD CREATINE INCREASED [None]
  - BLOOD PRESSURE DECREASED [None]
  - BLOOD UREA INCREASED [None]
  - DISORIENTATION [None]
  - HAEMATOCRIT DECREASED [None]
  - HAEMOGLOBIN DECREASED [None]
  - LETHARGY [None]
  - NODAL RHYTHM [None]
  - SINUS ARREST [None]
